FAERS Safety Report 14152045 (Version 1)
Quarter: 2017Q4

REPORT INFORMATION
  Report Type: Spontaneous
  Country: US (occurrence: None)
  Receive Date: 20171101
  Receipt Date: 20171101
  Transmission Date: 20180321
  Serious: Yes (Hospitalization)
  Sender: FDA-Public Use
  Company Number: None

PATIENT
  Age: 59 Year
  Sex: Female

DRUGS (2)
  1. PROGRAF [Suspect]
     Active Substance: TACROLIMUS\TACROLIMUS ANHYDROUS
     Indication: HYPERTENSION
     Dosage: 1 TWICE DAILY ORAL
     Route: 048
     Dates: start: 20171019, end: 20171021
  2. PROGRAF [Suspect]
     Active Substance: TACROLIMUS\TACROLIMUS ANHYDROUS
     Indication: SEIZURE
     Dosage: 1 TWICE DAILY ORAL
     Route: 048
     Dates: start: 20171019, end: 20171021

REACTIONS (2)
  - Blood pressure increased [None]
  - Seizure [None]

NARRATIVE: CASE EVENT DATE: 20171021
